FAERS Safety Report 15484398 (Version 1)
Quarter: 2018Q4

REPORT INFORMATION
  Report Type: Spontaneous
  Country: US (occurrence: US)
  Receive Date: 20181010
  Receipt Date: 20181010
  Transmission Date: 20190205
  Serious: No
  Sender: FDA-Public Use
  Company Number: US-TEVA-2018-US-961587

PATIENT
  Age: 15 Year
  Sex: Male

DRUGS (1)
  1. METHYLPHENIDATE HYDROCHLORIDE. [Suspect]
     Active Substance: METHYLPHENIDATE HYDROCHLORIDE
     Route: 065

REACTIONS (6)
  - Headache [Unknown]
  - Abdominal discomfort [Unknown]
  - Anger [Unknown]
  - Feeling abnormal [Unknown]
  - Cold sweat [Unknown]
  - Fatigue [Unknown]
